FAERS Safety Report 12647404 (Version 1)
Quarter: 2016Q3

REPORT INFORMATION
  Report Type: Spontaneous
  Country: US (occurrence: None)
  Receive Date: 20160811
  Receipt Date: 20160811
  Transmission Date: 20161109
  Serious: Yes (Disabling, Other)
  Sender: FDA-Public Use
  Company Number: None

PATIENT
  Age: 65 Year
  Sex: Male
  Weight: 65.32 kg

DRUGS (3)
  1. BUSPIRONE HCL [Concomitant]
     Active Substance: BUSPIRONE HYDROCHLORIDE
  2. FLUOXETINE HCL [Concomitant]
     Active Substance: FLUOXETINE HYDROCHLORIDE
  3. HARVONI [Suspect]
     Active Substance: LEDIPASVIR\SOFOSBUVIR
     Indication: HEPATITIS C
     Dosage: 1 PILL ONCE DAILY BY MOUTH
     Route: 048
     Dates: start: 20160720, end: 20160725

REACTIONS (9)
  - Arthralgia [None]
  - Asthenia [None]
  - Dyspnoea [None]
  - Dizziness [None]
  - Insomnia [None]
  - Feeling hot [None]
  - Nausea [None]
  - Syncope [None]
  - Abasia [None]

NARRATIVE: CASE EVENT DATE: 20160723
